FAERS Safety Report 20770376 (Version 1)
Quarter: 2022Q2

REPORT INFORMATION
  Report Type: Spontaneous
  Country: JP (occurrence: JP)
  Receive Date: 20220429
  Receipt Date: 20220429
  Transmission Date: 20220721
  Serious: Yes (Death, Other)
  Sender: FDA-Public Use
  Company Number: JP-TAKEDA-2022TJP043053

PATIENT
  Age: 77 Year
  Sex: Female

DRUGS (1)
  1. ZEJULA [Suspect]
     Active Substance: NIRAPARIB
     Indication: Ovarian cancer
     Dosage: 100 MILLIGRAM
     Route: 048
     Dates: start: 20211101, end: 20220326

REACTIONS (2)
  - Death [Fatal]
  - Adverse reaction [Unknown]

NARRATIVE: CASE EVENT DATE: 20220326
